FAERS Safety Report 8544233-1 (Version None)
Quarter: 2012Q3

REPORT INFORMATION
  Report Type: 
  Country: None (occurrence: None)
  Receive Date: 20120727
  Receipt Date: 20120723
  Transmission Date: 20120928
  Serious: Yes (Other)
  Sender: FDA-Public Use
  Company Number: US-PFIZER INC-2012087301

PATIENT
  Sex: Female

DRUGS (6)
  1. ACETYLSALICYLIC ACID [Concomitant]
     Dosage: UNK
     Route: 048
  2. NORVASC [Concomitant]
     Dosage: UNK
     Route: 048
  3. EVENING PRIMROSE OIL [Concomitant]
     Dosage: UNK
     Route: 048
  4. LATANOPROST [Suspect]
     Indication: GLAUCOMA
     Dosage: UNK
  5. CALCIUM CARBONATE/COLECALCIFEROL [Concomitant]
     Dosage: UNK
     Route: 048
  6. LORAZEPAM [Concomitant]
     Dosage: UNK
     Route: 048

REACTIONS (5)
  - PAIN [None]
  - VISUAL IMPAIRMENT [None]
  - DRUG HYPERSENSITIVITY [None]
  - MALAISE [None]
  - NAUSEA [None]
